FAERS Safety Report 18860166 (Version 1)
Quarter: 2021Q1

REPORT INFORMATION
  Report Type: Spontaneous
  Country: US (occurrence: US)
  Receive Date: 20210208
  Receipt Date: 20210208
  Transmission Date: 20210420
  Serious: No
  Sender: FDA-Public Use
  Company Number: US-TEVA-2021-US-1875043

PATIENT
  Age: 60 Year
  Sex: Female

DRUGS (26)
  1. RESTASIS [Concomitant]
     Active Substance: CYCLOSPORINE
     Route: 047
  2. AUSTEDO [Suspect]
     Active Substance: DEUTETRABENAZINE
     Route: 048
  3. OMEPRAZOLE 40 MG [Concomitant]
     Active Substance: OMEPRAZOLE
     Dosage: DELAYED REALEASE
     Route: 048
  4. ROPINIROLE HYDROCHLORIDE 3 MG [Concomitant]
     Route: 048
  5. LATANOPROST 0.005% [Concomitant]
     Active Substance: LATANOPROST
     Route: 047
  6. SUMATRIPTAN 5 MG/ACT [Concomitant]
     Route: 045
  7. TRAZODONE HYDROCHLORIDE 50 MG [Concomitant]
     Active Substance: TRAZODONE HYDROCHLORIDE
     Route: 048
  8. AUSTEDO [Suspect]
     Active Substance: DEUTETRABENAZINE
     Indication: TARDIVE DYSKINESIA
     Dosage: UNIT DOSE 1/2 TABLET
     Route: 048
     Dates: start: 20201223
  9. LAMICTAL [Concomitant]
     Active Substance: LAMOTRIGINE
     Route: 048
  10. FLUTICASONE PROPIONATE 50 MCG/ACT [Concomitant]
     Dosage: NASAL SUSPENSION
     Route: 065
  11. BUTOPHANOL TARTRATE 10 MG/ML [Concomitant]
     Route: 045
  12. CELEBREX [Concomitant]
     Active Substance: CELECOXIB
     Route: 048
  13. TYLENOL WITH CODEINE 300?30 MG [Concomitant]
     Route: 048
  14. QC TUMERIC COMPLEX 500 MG [Concomitant]
     Route: 048
  15. ALBUTEROL SULFATE HFA INHALATION AEROSOL SOLUTION 108 (90 BASE) MCG/AC [Concomitant]
  16. LORAZEPAM 0.5 MG [Concomitant]
     Active Substance: LORAZEPAM
     Route: 048
  17. DIAZEPAM 5 MG [Concomitant]
     Active Substance: DIAZEPAM
     Route: 048
  18. ZOLPIDEM [Concomitant]
     Active Substance: ZOLPIDEM TARTRATE
     Route: 048
  19. SYNTHROID [Concomitant]
     Active Substance: LEVOTHYROXINE SODIUM
     Route: 048
  20. HAIR SKIN AND NAILS ADVANCED [Concomitant]
     Route: 048
  21. MULTIVITAMIN ADULT [Concomitant]
     Route: 048
  22. DORZOLAMIDE HYDROCHLORIDE W/TIMOLOL MALEATE 2?0.5% [Concomitant]
     Route: 047
  23. TOPIRAMATE ER [Concomitant]
     Dosage: ER 24 HOUR SPRINKLE 50 MG
     Route: 048
  24. AUSTEDO [Suspect]
     Active Substance: DEUTETRABENAZINE
     Route: 048
  25. PROBIOTIC ACIDOPHILUS [Concomitant]
     Active Substance: LACTOBACILLUS ACIDOPHILUS
     Route: 048
  26. QUNOL ULTRA COQ10 [Concomitant]
     Dosage: 100?150 MG
     Route: 048

REACTIONS (3)
  - Abdominal pain [Unknown]
  - Depression [Unknown]
  - Migraine [Unknown]
